FAERS Safety Report 8120810-7 (Version None)
Quarter: 2012Q1

REPORT INFORMATION
  Report Type: 
  Country: None (occurrence: None)
  Receive Date: 20120207
  Receipt Date: 20120130
  Transmission Date: 20120608
  Serious: Yes (Hospitalization, Other)
  Sender: FDA-Public Use
  Company Number: US-BAYER-2012-010325

PATIENT
  Age: 76 Year
  Sex: Male
  Weight: 95 kg

DRUGS (22)
  1. ACETYLSALICYLIC ACID SRT [Concomitant]
     Dosage: 325 MG, UNK
  2. MULTI-VITAMIN [Concomitant]
  3. VECURONIUM BROMIDE [Concomitant]
     Dosage: 15 MG, UNK
  4. PROTAMINE SULFATE [Concomitant]
  5. INSULIN [Concomitant]
  6. FRESH FROZEN PLASMA [Concomitant]
     Dosage: 2 U, UNK
  7. TRASYLOL [Suspect]
     Indication: CORONARY ARTERY BYPASS
     Dosage: 200 ML, PUMP PRIME
     Dates: start: 20070510, end: 20070510
  8. CITRUCEL [Concomitant]
     Dosage: UNK UNK, QOD
  9. MANNITOL [Concomitant]
     Dosage: 25 G, UNK
  10. TRASYLOL [Suspect]
     Indication: ATRIAL SEPTAL DEFECT
     Dosage: 200 ML LOADING DOSE
     Dates: start: 20070510, end: 20070510
  11. LIDOCAINE [Concomitant]
     Dosage: 100 MG, UNK
  12. TRASYLOL [Suspect]
     Dosage: 50 CC/HR INFUSION
     Dates: start: 20070510, end: 20070510
  13. DOPAMINE HCL [Concomitant]
  14. TRIAMTERENE [Concomitant]
     Dosage: 25 MG, QD
  15. SEVOFLURANE [Concomitant]
  16. FENTANYL CITRATE [Concomitant]
     Dosage: 2000 MG, UNK
  17. PLATELETS [Concomitant]
     Dosage: 6 U, UNK
  18. RED BLOOD CELLS [Concomitant]
     Dosage: 2 U, UNK
  19. VANCOMYCIN [Concomitant]
  20. VITAMIN E [Concomitant]
  21. MIDAZOLAM [Concomitant]
     Dosage: 15 MG, UNK
  22. EPHEDRINE [Concomitant]

REACTIONS (6)
  - PERIPHERAL EMBOLISM [None]
  - ATRIAL FIBRILLATION [None]
  - RENAL EMBOLISM [None]
  - RENAL FAILURE ACUTE [None]
  - EMBOLISM [None]
  - FAT EMBOLISM [None]
